FAERS Safety Report 6972849-2 (Version None)
Quarter: 2010Q3

REPORT INFORMATION
  Report Type: 
  Country: None (occurrence: None)
  Receive Date: 20100909
  Receipt Date: 20100828
  Transmission Date: 20110219
  Serious: Yes (Other)
  Sender: FDA-Public Use
  Company Number: PHHY2010US27845

PATIENT
  Age: 60 Year
  Sex: Female

DRUGS (3)
  1. TEKTURNA HCT [Suspect]
     Indication: HYPERTENSION
     Dosage: 1 (150/25 MG) DAILY
     Route: 048
     Dates: start: 20100201, end: 20100301
  2. WELLBUTRIN [Concomitant]
     Dosage: 300 MG
     Route: 048
  3. NEXIUM [Concomitant]
     Dosage: 40 MG
     Route: 048

REACTIONS (4)
  - DIZZINESS [None]
  - EXTRASYSTOLES [None]
  - PALPITATIONS [None]
  - VENTRICULAR EXTRASYSTOLES [None]
